FAERS Safety Report 5003665-9 (Version None)
Quarter: 2006Q2

REPORT INFORMATION
  Report Type: 
  Country: None (occurrence: None)
  Receive Date: 20060516
  Receipt Date: 20060103
  Transmission Date: 20061013
  Serious: Yes (Hospitalization, Disabling)
  Sender: FDA-Public Use
  Company Number: US-MERCK-0601USA00293

PATIENT
  Age: 57 Year
  Sex: Female
  Weight: 55 kg

DRUGS (1)
  1. VIOXX [Suspect]
     Indication: ARTHRITIS
     Route: 048
     Dates: start: 19990929, end: 20010605

REACTIONS (12)
  - BREAST CANCER [None]
  - CARDIAC FAILURE CONGESTIVE [None]
  - CAROTID BRUIT [None]
  - CORONARY ARTERY DISEASE [None]
  - COUGH [None]
  - DYSPNOEA [None]
  - DYSPNOEA EXACERBATED [None]
  - HAEMOPTYSIS [None]
  - LUNG DISORDER [None]
  - MYOCARDIAL INFARCTION [None]
  - OEDEMA PERIPHERAL [None]
  - PYREXIA [None]
